FAERS Safety Report 15781726 (Version 1)
Quarter: 2019Q1

REPORT INFORMATION
  Report Type: Report from Study
  Country: GB (occurrence: GB)
  Receive Date: 20190102
  Receipt Date: 20190102
  Transmission Date: 20190417
  Serious: Yes (Death)
  Sender: FDA-Public Use
  Company Number: PHHY2018GB198434

PATIENT
  Age: 3 Year
  Sex: Female
  Weight: 11.2 kg

DRUGS (1)
  1. OMNITROPE [Suspect]
     Active Substance: SOMATROPIN
     Indication: PRODUCT USED FOR UNKNOWN INDICATION
     Dosage: 0.2 MG, QD (SUREPAL PEN)
     Route: 058
     Dates: start: 20170512

REACTIONS (1)
  - Death [Fatal]

NARRATIVE: CASE EVENT DATE: 201811
